FAERS Safety Report 8473556-X (Version None)
Quarter: 2012Q2

REPORT INFORMATION
  Report Type: 
  Country: None (occurrence: None)
  Receive Date: 20120628
  Receipt Date: 20110708
  Transmission Date: 20120825
  Serious: Yes (Death, Hospitalization)
  Sender: FDA-Public Use
  Company Number: US-MYLANLABS-2011S1010585

PATIENT
  Age: 46 Year
  Sex: Female

DRUGS (3)
  1. BENZTROPINE MESYLATE [Concomitant]
  2. CLOZAPINE [Suspect]
     Route: 048
     Dates: start: 20100806, end: 20110405
  3. CLOZAPINE [Suspect]
     Indication: SCHIZOAFFECTIVE DISORDER
     Route: 048
     Dates: start: 20100806, end: 20110405

REACTIONS (2)
  - CEREBRAL HAEMORRHAGE [None]
  - CEREBROVASCULAR ACCIDENT [None]
